FAERS Safety Report 7769409-2 (Version None)
Quarter: 2011Q3

REPORT INFORMATION
  Report Type: 
  Country: None (occurrence: None)
  Receive Date: 20110922
  Receipt Date: 20101229
  Transmission Date: 20111222
  Serious: No
  Sender: FDA-Public Use
  Company Number: US-ASTRAZENECA-2010SE61343

PATIENT
  Age: 52 Year
  Sex: Female

DRUGS (5)
  1. SEROQUEL XR [Suspect]
     Indication: BIPOLAR DISORDER
     Route: 048
     Dates: start: 20100501, end: 20101223
  2. CLONAZEPAM [Concomitant]
  3. MEDICATION FOR HER LIVER [Concomitant]
  4. PROZAC [Concomitant]
  5. AXERT [Concomitant]
     Indication: MIGRAINE

REACTIONS (6)
  - DRUG DOSE OMISSION [None]
  - INSOMNIA [None]
  - IMPAIRED DRIVING ABILITY [None]
  - MEMORY IMPAIRMENT [None]
  - ANXIETY [None]
  - DYSKINESIA [None]
